FAERS Safety Report 19965158 (Version 3)
Quarter: 2022Q1

REPORT INFORMATION
  Report Type: Spontaneous
  Country: DE (occurrence: CA)
  Receive Date: 20211018
  Receipt Date: 20220322
  Transmission Date: 20220423
  Serious: Yes (Hospitalization, Other)
  Sender: FDA-Public Use
  Company Number: DE-MYLANLABS-2021M1067500

PATIENT
  Age: 77 Year
  Sex: Female

DRUGS (55)
  1. ALBUTEROL SULFATE [Suspect]
     Active Substance: ALBUTEROL SULFATE
     Indication: Product used for unknown indication
     Dosage: UNK
     Route: 065
  2. DILTIAZEM [Suspect]
     Active Substance: DILTIAZEM
     Indication: Angina pectoris
     Dosage: 360 MILLIGRAM, QD
     Route: 065
  3. DILTIAZEM [Suspect]
     Active Substance: DILTIAZEM
     Indication: Chest pain
     Route: 065
  4. DILTIAZEM [Suspect]
     Active Substance: DILTIAZEM
     Indication: Coronary artery disease
  5. DILTIAZEM [Suspect]
     Active Substance: DILTIAZEM
     Indication: Hypertension
  6. NITROGLYCERIN [Suspect]
     Active Substance: NITROGLYCERIN
     Indication: Product used for unknown indication
     Route: 065
  7. ALBUTEROL [Suspect]
     Active Substance: ALBUTEROL
     Indication: Product used for unknown indication
     Route: 065
  8. DILTIAZEM HYDROCHLORIDE [Suspect]
     Active Substance: DILTIAZEM HYDROCHLORIDE
     Indication: Product used for unknown indication
     Route: 065
  9. DILTIAZEM HYDROCHLORIDE [Suspect]
     Active Substance: DILTIAZEM HYDROCHLORIDE
     Route: 065
  10. GLUCOSAMINE [Suspect]
     Active Substance: GLUCOSAMINE
     Indication: Product used for unknown indication
     Dosage: UNK
     Route: 065
  11. AMLODIPINE BESYLATE [Suspect]
     Active Substance: AMLODIPINE BESYLATE
     Indication: Product used for unknown indication
     Dosage: UNK
     Route: 065
  12. DULCOLAX NOS [Suspect]
     Active Substance: BISACODYL OR DOCUSATE SODIUM
     Indication: Constipation
     Route: 065
  13. ACEBUTOLOL [Suspect]
     Active Substance: ACEBUTOLOL
     Indication: Product used for unknown indication
     Dosage: UNK
     Route: 065
  14. ACEBUTOLOL [Suspect]
     Active Substance: ACEBUTOLOL
     Route: 065
  15. SPIRIVA [Suspect]
     Active Substance: TIOTROPIUM BROMIDE MONOHYDRATE
     Indication: Chronic obstructive pulmonary disease
     Route: 065
  16. AMITRIPTYLINE HYDROCHLORIDE [Suspect]
     Active Substance: AMITRIPTYLINE HYDROCHLORIDE
     Indication: Product used for unknown indication
     Dosage: UNK
     Route: 065
  17. FUROSEMIDE [Suspect]
     Active Substance: FUROSEMIDE
     Indication: Oedema
     Route: 065
  18. CYCLOBENZAPRINE [Suspect]
     Active Substance: CYCLOBENZAPRINE
     Indication: Product used for unknown indication
     Dosage: UNK
     Route: 065
  19. OXAZEPAM [Suspect]
     Active Substance: OXAZEPAM
     Indication: Product used for unknown indication
     Dosage: UNK
     Route: 065
  20. OXAZEPAM [Suspect]
     Active Substance: OXAZEPAM
     Route: 065
  21. CYCLOBENZAPRINE HYDROCHLORIDE [Suspect]
     Active Substance: CYCLOBENZAPRINE HYDROCHLORIDE
     Indication: Product used for unknown indication
     Dosage: UNK
     Route: 065
  22. LEVOTHYROXINE SODIUM [Suspect]
     Active Substance: LEVOTHYROXINE SODIUM
     Indication: Product used for unknown indication
     Dosage: UNK
     Route: 065
  23. CARBAMAZEPINE [Suspect]
     Active Substance: CARBAMAZEPINE
     Indication: Product used for unknown indication
     Dosage: UNK
     Route: 065
  24. OMEPRAZOLE [Suspect]
     Active Substance: OMEPRAZOLE
     Indication: Duodenal ulcer
     Route: 048
  25. GALANTAMINE HYDROBROMIDE [Suspect]
     Active Substance: GALANTAMINE HYDROBROMIDE
     Indication: Product used for unknown indication
     Dosage: UNK
     Route: 065
  26. AGGRENOX [Suspect]
     Active Substance: ASPIRIN\DIPYRIDAMOLE
     Indication: Cerebrovascular accident
     Dosage: 1 DOSAGE FORM, BID
     Route: 065
  27. AGGRENOX [Suspect]
     Active Substance: ASPIRIN\DIPYRIDAMOLE
     Route: 065
  28. OXAZEPAM [Suspect]
     Active Substance: OXAZEPAM
     Indication: Product used for unknown indication
     Dosage: UNK
     Route: 065
  29. OXAZEPAM [Suspect]
     Active Substance: OXAZEPAM
     Route: 065
  30. CYCLOBENZAPRINE [Suspect]
     Active Substance: CYCLOBENZAPRINE
     Indication: Product used for unknown indication
     Dosage: UNK
     Route: 065
  31. MORPHINE SULFATE [Suspect]
     Active Substance: MORPHINE SULFATE
     Indication: Pain
     Route: 065
  32. MORPHINE SULFATE [Suspect]
     Active Substance: MORPHINE SULFATE
     Indication: Fibromyalgia
  33. AMITRIPTYLINE HYDROCHLORIDE [Suspect]
     Active Substance: AMITRIPTYLINE HYDROCHLORIDE
     Indication: Product used for unknown indication
     Dosage: UNK
     Route: 065
  34. AMITRIPTYLINE HYDROCHLORIDE [Suspect]
     Active Substance: AMITRIPTYLINE HYDROCHLORIDE
     Route: 065
  35. LACTULOSE [Suspect]
     Active Substance: LACTULOSE
     Indication: Product used for unknown indication
     Dosage: UNK
     Route: 065
  36. LACTULOSE [Suspect]
     Active Substance: LACTULOSE
     Route: 048
  37. CARBAMAZEPINE [Suspect]
     Active Substance: CARBAMAZEPINE
     Indication: Product used for unknown indication
     Dosage: UNK
     Route: 065
  38. DILTIAZEM [Suspect]
     Active Substance: DILTIAZEM
     Indication: Product used for unknown indication
     Dosage: UNK
     Route: 065
  39. QUINAPRIL HYDROCHLORIDE [Suspect]
     Active Substance: QUINAPRIL HYDROCHLORIDE
     Indication: Coronary artery disease
     Route: 065
  40. QUINAPRIL HYDROCHLORIDE [Suspect]
     Active Substance: QUINAPRIL HYDROCHLORIDE
     Indication: Hypertension
     Route: 065
  41. PERSANTINE [Suspect]
     Active Substance: DIPYRIDAMOLE
     Indication: Cerebrovascular accident
     Route: 065
  42. PERSANTINE [Suspect]
     Active Substance: DIPYRIDAMOLE
     Route: 065
  43. ACETAMINOPHEN AND CODEINE [Suspect]
     Active Substance: ACETAMINOPHEN\CODEINE PHOSPHATE
     Indication: Product used for unknown indication
     Dosage: UNK
     Route: 065
  44. LEVOFLOXACIN [Suspect]
     Active Substance: LEVOFLOXACIN
     Indication: Product used for unknown indication
     Dosage: UNK
     Route: 065
  45. MAGNESIUM HYDROXIDE [Suspect]
     Active Substance: MAGNESIUM HYDROXIDE
     Indication: Product used for unknown indication
     Dosage: UNK
     Route: 065
  46. CHONDROITIN SULFATE (BOVINE)\GLUCOSAMINE SULFATE [Suspect]
     Active Substance: CHONDROITIN SULFATE (BOVINE)\GLUCOSAMINE SULFATE
     Indication: Product used for unknown indication
     Dosage: UNK
     Route: 065
  47. ROSUVASTATIN [Suspect]
     Active Substance: ROSUVASTATIN
     Indication: Product used for unknown indication
     Dosage: UNK
     Route: 048
  48. ROSUVASTATIN [Suspect]
     Active Substance: ROSUVASTATIN
     Route: 048
  49. MORPHINE SULFATE [Suspect]
     Active Substance: MORPHINE SULFATE
     Indication: Pain
     Route: 065
  50. MORPHINE SULFATE [Suspect]
     Active Substance: MORPHINE SULFATE
     Indication: Fibromyalgia
     Route: 065
  51. BISACODYL [Suspect]
     Active Substance: BISACODYL
     Indication: Constipation
     Route: 065
  52. CRANBERRY [Concomitant]
     Active Substance: CRANBERRY
     Indication: Product used for unknown indication
     Dosage: UNK
  53. ZINC [Concomitant]
     Active Substance: ZINC
     Indication: Product used for unknown indication
     Dosage: UNK
  54. ACETAMINOPHEN [Concomitant]
     Active Substance: ACETAMINOPHEN
     Indication: Product used for unknown indication
     Dosage: UNK
  55. CRANBERRY [Concomitant]
     Active Substance: CRANBERRY
     Indication: Product used for unknown indication
     Dosage: UNK

REACTIONS (14)
  - Mobility decreased [Recovered/Resolved]
  - Pain [Recovered/Resolved]
  - Balance disorder [Recovered/Resolved]
  - Depressed level of consciousness [Recovered/Resolved]
  - Creatinine renal clearance decreased [Recovered/Resolved]
  - Fall [Recovered/Resolved]
  - Sedation complication [Recovered/Resolved]
  - Cognitive disorder [Recovered/Resolved]
  - Sedation [Recovered/Resolved]
  - Blood calcium decreased [Recovered/Resolved]
  - Toxicity to various agents [Recovered/Resolved]
  - Hypotension [Recovered/Resolved]
  - Constipation [Recovered/Resolved]
  - Orthostatic hypotension [Recovered/Resolved]
